FAERS Safety Report 11030842 (Version 4)
Quarter: 2015Q2

REPORT INFORMATION
  Report Type: Spontaneous
  Country: CA (occurrence: CA)
  Receive Date: 20150415
  Receipt Date: 20150624
  Transmission Date: 20150821
  Serious: Yes (Other)
  Sender: FDA-Public Use
  Company Number: CA-PFIZER INC-2014335634

PATIENT
  Age: 65 Year
  Sex: Female
  Weight: 77.98 kg

DRUGS (23)
  1. CARIPUL [Suspect]
     Active Substance: EPOPROSTENOL
     Dosage: 75000 NG/ML, (3.2 ML/HR INFUSION RATE)
     Route: 041
  2. LASIX [Concomitant]
     Active Substance: FUROSEMIDE
     Dosage: 80 MG, UNK
  3. CRESTOR [Concomitant]
     Active Substance: ROSUVASTATIN CALCIUM
     Dosage: UNK
  4. ALDACTONE [Concomitant]
     Active Substance: SPIRONOLACTONE
     Dosage: 12.5 MG, UNK
  5. IRON [Concomitant]
     Active Substance: IRON
     Dosage: DAILY
  6. LANTUS [Concomitant]
     Active Substance: INSULIN GLARGINE
     Dosage: UNK
  7. SLOW-K [Concomitant]
     Active Substance: POTASSIUM CHLORIDE
     Dosage: UNK
  8. VITAMIN B12 [Concomitant]
     Active Substance: CYANOCOBALAMIN
     Dosage: UNK
  9. REVATIO [Suspect]
     Active Substance: SILDENAFIL CITRATE
     Indication: PULMONARY ARTERIAL HYPERTENSION
     Dosage: 20 MG, 3X/DAY
     Route: 048
     Dates: start: 20091203
  10. CARIPUL [Suspect]
     Active Substance: EPOPROSTENOL
     Dosage: 75000 NG/ML, (3.6 ML/HR INFUSION RATE)
  11. FOLIC ACID. [Concomitant]
     Active Substance: FOLIC ACID
     Dosage: UNK
  12. OXYGEN. [Concomitant]
     Active Substance: OXYGEN
     Dosage: 3 LITRES VIA NASAL CANULA
     Route: 055
  13. CARIPUL [Suspect]
     Active Substance: EPOPROSTENOL
     Dosage: 75000 NG/ML, (3.4 ML/HR INFUSION RATE)
  14. OXYGEN. [Concomitant]
     Active Substance: OXYGEN
     Dosage: 5 LITRES VIA NASAL CANULA
     Route: 055
  15. CODEINE CONTIN [Concomitant]
     Active Substance: CODEINE SULFATE
     Dosage: UNK
  16. NEXIUM [Concomitant]
     Active Substance: ESOMEPRAZOLE MAGNESIUM
     Dosage: UNK
  17. INSULIN NOVO RAPID [Concomitant]
     Dosage: UNK
  18. GLYBURIDE. [Concomitant]
     Active Substance: GLYBURIDE
     Dosage: UNK
  19. OXYGEN. [Concomitant]
     Active Substance: OXYGEN
     Dosage: 3 LITRES VIA NASAL CANULA
     Route: 055
  20. SYNTHROID [Concomitant]
     Active Substance: LEVOTHYROXINE SODIUM
     Dosage: UNK
  21. WARFARIN [Concomitant]
     Active Substance: WARFARIN
     Dosage: UNK
  22. TYLENOL 111 [Concomitant]
     Dosage: AS NEEDED
  23. VITAMIN B COMPLEX [Concomitant]
     Active Substance: CYANOCOBALAMIN\DEXPANTHENOL\NIACINAMIDE\PYRIDOXINE HYDROCHLORIDE\RIBOFLAVIN 5^-PHOSPHATE SODIUM\THIAMINE HYDROCHLORIDE\VITAMIN B COMPLEX
     Dosage: UNK

REACTIONS (9)
  - General physical health deterioration [Not Recovered/Not Resolved]
  - Weight decreased [Unknown]
  - Headache [Not Recovered/Not Resolved]
  - Influenza like illness [Recovered/Resolved]
  - Bronchitis [Not Recovered/Not Resolved]
  - Oxygen saturation decreased [Unknown]
  - Hearing impaired [Not Recovered/Not Resolved]
  - Product quality issue [Unknown]
  - Nausea [Not Recovered/Not Resolved]

NARRATIVE: CASE EVENT DATE: 20141112
